APPROVED DRUG PRODUCT: ATORVASTATIN CALCIUM
Active Ingredient: ATORVASTATIN CALCIUM
Strength: EQ 20MG BASE
Dosage Form/Route: TABLET;ORAL
Application: A214969 | Product #002 | TE Code: AB
Applicant: APOTEX INC
Approved: Sep 2, 2021 | RLD: No | RS: No | Type: RX